FAERS Safety Report 6183449-9 (Version None)
Quarter: 2009Q2

REPORT INFORMATION
  Report Type: 
  Country: None (occurrence: None)
  Receive Date: 20090506
  Receipt Date: 20090428
  Transmission Date: 20091009
  Serious: Yes (Death)
  Sender: FDA-Public Use
  Company Number: 2009AL002579

PATIENT
  Sex: Female

DRUGS (1)
  1. DIGOXIN [Suspect]
     Dosage: PO
     Route: 048

REACTIONS (6)
  - ECONOMIC PROBLEM [None]
  - ILL-DEFINED DISORDER [None]
  - MENTAL DISORDER [None]
  - MULTIPLE INJURIES [None]
  - PAIN [None]
  - SOCIAL PROBLEM [None]
